FAERS Safety Report 6627075-3 (Version None)
Quarter: 2010Q1

REPORT INFORMATION
  Report Type: 
  Country: None (occurrence: None)
  Receive Date: 20100311
  Receipt Date: 20090715
  Transmission Date: 20100710
  Serious: No
  Sender: FDA-Public Use
  Company Number: A0797031A

PATIENT
  Age: 47 Year
  Sex: Female

DRUGS (2)
  1. NICOTINE POLACRILEX [Suspect]
  2. ANTIDEPRESSANT [Concomitant]

REACTIONS (1)
  - INTENTIONAL DRUG MISUSE [None]
